FAERS Safety Report 4610919-4 (Version None)
Quarter: 2005Q1

REPORT INFORMATION
  Report Type: 
  Country: None (occurrence: None)
  Receive Date: 20050303
  Receipt Date: 20050119
  Transmission Date: 20050727
  Serious: No
  Sender: FDA-Public Use
  Company Number: 2005BI001554

PATIENT
  Age: 63 Year
  Sex: Male

DRUGS (1)
  1. AMEVIVE [Suspect]
     Indication: PSORIASIS
     Dosage: 15 MG;QW;IM
     Route: 030
     Dates: start: 20050101

REACTIONS (1)
  - LETHARGY [None]
